FAERS Safety Report 8298883-0 (Version None)
Quarter: 2012Q2

REPORT INFORMATION
  Report Type: 
  Country: None (occurrence: None)
  Receive Date: 20120419
  Receipt Date: 20120409
  Transmission Date: 20120825
  Serious: Yes (Other)
  Sender: FDA-Public Use
  Company Number: KR-TEVA-333517ISR

PATIENT
  Age: 25 Year
  Sex: Female

DRUGS (4)
  1. CYTARABINE [Suspect]
     Dosage: 3000 MG/M2; ON DAYS 1-6
     Route: 065
  2. MITOXANTRONE [Suspect]
     Indication: ACUTE MYELOID LEUKAEMIA
     Dosage: ON DAYS 1-6
     Route: 065
  3. IDARUBICIN HCL [Suspect]
     Indication: ACUTE MYELOID LEUKAEMIA
     Dosage: ON DAYS 1-3
     Route: 065
  4. CYTARABINE [Suspect]
     Indication: ACUTE MYELOID LEUKAEMIA
     Dosage: 200 MG/M2; ON DAYS 1-7
     Route: 065

REACTIONS (1)
  - PERICARDITIS [None]
